FAERS Safety Report 23493493 (Version 1)
Quarter: 2024Q1

REPORT INFORMATION
  Report Type: Spontaneous
  Country: US (occurrence: US)
  Receive Date: 20240207
  Receipt Date: 20240207
  Transmission Date: 20240409
  Serious: Yes (Other)
  Sender: FDA-Public Use
  Company Number: US-AURINIA PHARMACEUTICALS INC.-AUR-005141

PATIENT
  Age: 55 Year
  Sex: Male

DRUGS (6)
  1. LUPKYNIS [Suspect]
     Active Substance: VOCLOSPORIN
     Indication: Glomerulonephritis membranous
     Dosage: 23.7 MILLIGRAM, BID
     Route: 048
     Dates: start: 20211117
  2. LUPKYNIS [Suspect]
     Active Substance: VOCLOSPORIN
     Indication: Haematuria
  3. MYCOPHENOLIC ACID [Concomitant]
     Active Substance: MYCOPHENOLIC ACID
     Indication: Glomerulonephritis membranous
     Dosage: UNK
  4. MYCOPHENOLIC ACID [Concomitant]
     Active Substance: MYCOPHENOLIC ACID
     Indication: Haematuria
  5. CYCLOPHOSPHAMIDE [Concomitant]
     Active Substance: CYCLOPHOSPHAMIDE
     Indication: Glomerulonephritis membranous
     Dosage: UNK
  6. CYCLOPHOSPHAMIDE [Concomitant]
     Active Substance: CYCLOPHOSPHAMIDE
     Indication: Haematuria

REACTIONS (5)
  - Nephrotic syndrome [Unknown]
  - Urine protein/creatinine ratio increased [Unknown]
  - Blood albumin abnormal [Recovering/Resolving]
  - Off label use [Unknown]
  - Therapy interrupted [Unknown]

NARRATIVE: CASE EVENT DATE: 20231212
